FAERS Safety Report 24992269 (Version 1)
Quarter: 2025Q1

REPORT INFORMATION
  Report Type: Spontaneous
  Country: CN (occurrence: CN)
  Receive Date: 20250220
  Receipt Date: 20250220
  Transmission Date: 20250408
  Serious: Yes (Other)
  Sender: AMGEN
  Company Number: CN-PFIZER INC-PV202500017312

PATIENT
  Age: 55 Year
  Sex: Female
  Weight: 65 kg

DRUGS (2)
  1. ETANERCEPT [Suspect]
     Active Substance: ETANERCEPT
     Indication: Rheumatoid arthritis
     Dosage: 25 MG, WEEKLY
     Route: 058
     Dates: start: 20241231
  2. ETANERCEPT [Suspect]
     Active Substance: ETANERCEPT
     Route: 058
     Dates: start: 20250203

REACTIONS (4)
  - Rash [Recovered/Resolved]
  - Chest discomfort [Recovered/Resolved]
  - Dyspnoea [Recovered/Resolved]
  - Off label use [Unknown]

NARRATIVE: CASE EVENT DATE: 20241231
